FAERS Safety Report 9549210 (Version 5)
Quarter: 2013Q4

REPORT INFORMATION
  Report Type: Report from Study
  Country: US (occurrence: US)
  Receive Date: 20130924
  Receipt Date: 20131018
  Transmission Date: 20140711
  Serious: Yes (Hospitalization)
  Sender: FDA-Public Use
  Company Number: US-ACTELION-A-US2013-85506

PATIENT
  Age: 62 Year
  Sex: Male

DRUGS (5)
  1. VELETRI [Suspect]
     Indication: PULMONARY ARTERIAL HYPERTENSION
     Dosage: 13 NG/KG, UNK
     Route: 042
     Dates: start: 20130613
  2. VELETRI [Suspect]
     Dosage: 4 NG/KG, PER MIN
     Route: 042
     Dates: start: 20130613
  3. VELETRI [Suspect]
     Dosage: 5.46 NG/KG, PER MIN
     Route: 042
     Dates: start: 20130613
  4. TRACLEER [Concomitant]
     Indication: PULMONARY ARTERIAL HYPERTENSION
     Dosage: UNK
     Route: 048
  5. SILDENAFIL [Concomitant]

REACTIONS (8)
  - Pyrexia [Unknown]
  - Nausea [Unknown]
  - Pain in jaw [Unknown]
  - Headache [Unknown]
  - Nasal congestion [Unknown]
  - Flushing [Unknown]
  - Feeling hot [Unknown]
  - Malaise [Unknown]
